FAERS Safety Report 8415143-5 (Version None)
Quarter: 2012Q2

REPORT INFORMATION
  Report Type: 
  Country: None (occurrence: None)
  Receive Date: 20120606
  Receipt Date: 20120530
  Transmission Date: 20120825
  Serious: No
  Sender: FDA-Public Use
  Company Number: US-PFIZER INC-2012101142

PATIENT
  Sex: Female
  Weight: 111 kg

DRUGS (5)
  1. HYDROCHLOROTHIAZIDE [Concomitant]
     Dosage: 75 MG, 1X/DAY
  2. CLONIDINE [Concomitant]
     Dosage: 2 MG, 1X/DAY
  3. ARTHROTEC [Suspect]
     Indication: ARTHRITIS
     Dosage: 75 MG, 2X/DAY
     Route: 048
     Dates: end: 20120401
  4. NEXIUM [Concomitant]
     Indication: GASTRITIS
     Dosage: 40 MG,DAILY
  5. OXYCODONE [Concomitant]
     Indication: ARTHRALGIA
     Dosage: UNK, AS NEEDED

REACTIONS (1)
  - MALAISE [None]
